FAERS Safety Report 4285387-5 (Version None)
Quarter: 2004Q1

REPORT INFORMATION
  Report Type: 
  Country: None (occurrence: None)
  Receive Date: 20040202
  Receipt Date: 20040122
  Transmission Date: 20041129
  Serious: Yes (Death)
  Sender: FDA-Public Use
  Company Number: 2004000780

PATIENT
  Age: 84 Year
  Sex: Male

DRUGS (7)
  1. NORVASC [Suspect]
     Indication: HYPERTENSION
     Dosage: 5 MG DAILY, ORAL
     Route: 048
     Dates: start: 20040102, end: 20040105
  2. LANSOPRAZOLE [Suspect]
     Indication: GASTRIC ULCER
     Dosage: 30 MG DAILY, ORAL
     Route: 048
     Dates: start: 20031224, end: 20040105
  3. REBAMIPIDE (REBAMIPIDE) [Concomitant]
  4. TEPRENONE (TEPRENONE) [Concomitant]
  5. AMINOFLUID (GLUCOSE, AMINO ACIDS  NOS, ELECTROLYTES NOS) [Concomitant]
  6. MINERAL TAB [Concomitant]
  7. MULTIVITAMIN [Concomitant]

REACTIONS (2)
  - ACUTE MYOCARDIAL INFARCTION [None]
  - HEPATIC FUNCTION ABNORMAL [None]
